FAERS Safety Report 4610700-6 (Version None)
Quarter: 2005Q2

REPORT INFORMATION
  Report Type: 
  Country: None (occurrence: None)
  Receive Date: 20050228
  Receipt Date: 20041229
  Transmission Date: 20051028
  Serious: No
  Sender: FDA-Public Use
  Company Number: 211378

PATIENT
  Age: 15 Year
  Sex: Female
  Weight: 69.7 kg

DRUGS (4)
  1. NUTROPIN [Suspect]
     Indication: HYPOPITUITARISM
     Dosage: 5.805 MG, 6/WEEK; SUBCUTANEOUS
     Route: 058
     Dates: start: 19930609
  2. ADVIR (FLUTICASONE PROPIONATE, SALMETEROL NAFOATE) [Concomitant]
  3. ALBUTEROL INHALER (ALBUTEROL, ALBUTEROL SULFATE) [Concomitant]
  4. SYNTHROID [Concomitant]

REACTIONS (1)
  - SLIPPED FEMORAL EPIPHYSIS [None]
